FAERS Safety Report 10040070 (Version 3)
Quarter: 2014Q2

REPORT INFORMATION
  Report Type: Spontaneous
  Country: BR (occurrence: BR)
  Receive Date: 20140326
  Receipt Date: 20140414
  Transmission Date: 20141212
  Serious: Yes (Death, Other)
  Sender: FDA-Public Use
  Company Number: BR-AMGEN-BRASP2013012259

PATIENT
  Age: 72 Year
  Sex: Female
  Weight: 75 kg

DRUGS (4)
  1. ENBREL [Suspect]
     Indication: RHEUMATOID ARTHRITIS
     Dosage: 50 MG, ONCE WEEKLY
     Route: 058
     Dates: start: 201301
  2. ENBREL [Suspect]
     Dosage: 50 MG, QWK
     Route: 058
  3. ENBREL [Suspect]
     Dosage: 50 MG, EVERY 15 DAYS
     Route: 065
  4. ENBREL [Suspect]
     Dosage: 50 MG, ONCE MONTHLY
     Route: 065
     Dates: end: 201310

REACTIONS (7)
  - Death [Fatal]
  - Dyspnoea [Not Recovered/Not Resolved]
  - Cardiomegaly [Unknown]
  - Haemorrhoids [Unknown]
  - Lung disorder [Unknown]
  - Wound [Unknown]
  - Feeling abnormal [Unknown]
